FAERS Safety Report 6026723-9 (Version None)
Quarter: 2008Q4

REPORT INFORMATION
  Report Type: 
  Country: None (occurrence: None)
  Receive Date: 20081222
  Receipt Date: 20081104
  Transmission Date: 20090506
  Serious: No
  Sender: FDA-Public Use
  Company Number: US-WYE-H06666208

PATIENT
  Age: 59 Year
  Sex: Female

DRUGS (6)
  1. PRISTIQ [Suspect]
     Indication: DEPRESSION
     Dosage: 50 MG 1X PER 1 DAY,ORAL
     Route: 048
     Dates: start: 20080801
  2. SINGULAIR [Concomitant]
  3. ZYRTEC [Concomitant]
  4. XYZAL (LEVOCETIRIZINE) [Concomitant]
  5. ADVAIR DISKUS 100/50 [Concomitant]
  6. LEXAPRO [Concomitant]

REACTIONS (3)
  - AGITATION [None]
  - DRUG EFFECT DECREASED [None]
  - HYPERHIDROSIS [None]
